FAERS Safety Report 14409022 (Version 1)
Quarter: 2018Q1

REPORT INFORMATION
  Report Type: Spontaneous
  Country: FR (occurrence: FR)
  Receive Date: 20180119
  Receipt Date: 20180119
  Transmission Date: 20180509
  Serious: Yes (Other)
  Sender: FDA-Public Use
  Company Number: FR-MERCK KGAA-2040332

PATIENT
  Age: 26 Year
  Sex: Female
  Weight: 53 kg

DRUGS (3)
  1. NEO-MERCAZOLE [Suspect]
     Active Substance: CARBIMAZOLE
     Route: 048
     Dates: start: 20151001
  2. NOVOTHYROX [Suspect]
     Active Substance: LEVOTHYROXINE SODIUM
     Indication: PRODUCT USED FOR UNKNOWN INDICATION
     Dates: start: 20170405
  3. LEVOTHYROX 75 [Suspect]
     Active Substance: LEVOTHYROXINE
     Dates: start: 20170405

REACTIONS (12)
  - Myalgia [None]
  - Vertigo [None]
  - Vision blurred [None]
  - Fatigue [None]
  - Insomnia [None]
  - Nausea [None]
  - Hyperhidrosis [None]
  - Depression [None]
  - Arrhythmia [None]
  - Weight loss poor [None]
  - Gastrointestinal disorder [None]
  - Migraine [None]

NARRATIVE: CASE EVENT DATE: 201707
